FAERS Safety Report 4533229-2 (Version None)
Quarter: 2004Q4

REPORT INFORMATION
  Report Type: 
  Country: None (occurrence: None)
  Receive Date: 20041220
  Receipt Date: 20041220
  Transmission Date: 20050328
  Serious: No
  Sender: FDA-Public Use
  Company Number: None

PATIENT
  Age: 61 Year
  Sex: Female
  Weight: 158.759 kg

DRUGS (1)
  1. SODIUM CHLORIDE 0.9% [Suspect]

REACTIONS (6)
  - BURNING SENSATION [None]
  - MEDICATION ERROR [None]
  - PAIN [None]
  - PHARMACEUTICAL PRODUCT COMPLAINT [None]
  - SKIN IRRITATION [None]
  - TENDERNESS [None]
